FAERS Safety Report 16672879 (Version 1)
Quarter: 2019Q3

REPORT INFORMATION
  Report Type: Spontaneous
  Country: FR (occurrence: FR)
  Receive Date: 20190805
  Receipt Date: 20190805
  Transmission Date: 20191004
  Serious: Yes (Disabling)
  Sender: FDA-Public Use
  Company Number: None

PATIENT
  Age: 29 Year
  Sex: Male
  Weight: 74 kg

DRUGS (1)
  1. FINASTERIDE 1MG MYLAN [Suspect]
     Active Substance: FINASTERIDE
     Indication: ALOPECIA
     Dates: start: 20180501, end: 20180701

REACTIONS (5)
  - Sperm concentration decreased [None]
  - Seborrhoea [None]
  - Erectile dysfunction [None]
  - Loss of libido [None]
  - Gynaecomastia [None]

NARRATIVE: CASE EVENT DATE: 20180701
